FAERS Safety Report 13794972 (Version 2)
Quarter: 2017Q3

REPORT INFORMATION
  Report Type: Report from Study
  Country: US (occurrence: US)
  Receive Date: 20170726
  Receipt Date: 20170829
  Transmission Date: 20171127
  Serious: Yes (Hospitalization, Other)
  Sender: FDA-Public Use
  Company Number: US-GILEAD-2017-0284942

PATIENT
  Age: 70 Year
  Sex: Female

DRUGS (1)
  1. RANOLAZINE. [Suspect]
     Active Substance: RANOLAZINE
     Indication: ANGINA PECTORIS
     Dosage: 500 MG, UNK
     Route: 048

REACTIONS (8)
  - Seizure [Unknown]
  - Osteoporosis [Not Recovered/Not Resolved]
  - Body height decreased [Unknown]
  - Drug dose omission [Unknown]
  - Blood pressure fluctuation [Unknown]
  - Chest pain [Unknown]
  - Bacterial infection [Unknown]
  - Weight decreased [Unknown]
